FAERS Safety Report 4495763-3 (Version None)
Quarter: 2004Q4

REPORT INFORMATION
  Report Type: 
  Country: None (occurrence: None)
  Receive Date: 20041104
  Receipt Date: 20041028
  Transmission Date: 20050328
  Serious: Yes (Other)
  Sender: FDA-Public Use
  Company Number: 200412977GDS

PATIENT
  Age: 60 Year
  Sex: Female

DRUGS (3)
  1. IBUPROFEN [Suspect]
     Indication: ARTHRALGIA
     Dosage: QD, ORAL
     Route: 048
  2. METHOTREXATE [Suspect]
     Indication: CROHN'S DISEASE
     Dosage: OW, SUBCUTANEOUS
     Route: 058
  3. ACETAMINOPHEN [Concomitant]

REACTIONS (7)
  - ARTHRALGIA [None]
  - BONE MARROW DEPRESSION [None]
  - DRUG INEFFECTIVE [None]
  - DRUG INTERACTION [None]
  - LEUKOPENIA [None]
  - PNEUMOCYSTIS CARINII PNEUMONIA [None]
  - SELF-MEDICATION [None]
